FAERS Safety Report 13981083 (Version 1)
Quarter: 2017Q3

REPORT INFORMATION
  Report Type: Spontaneous
  Country: US (occurrence: US)
  Receive Date: 20170918
  Receipt Date: 20170918
  Transmission Date: 20171128
  Serious: No
  Sender: FDA-Public Use
  Company Number: US-TEVA-739230USA

PATIENT
  Sex: Male

DRUGS (1)
  1. BUPROPION. [Suspect]
     Active Substance: BUPROPION
     Route: 065

REACTIONS (12)
  - Nausea [Unknown]
  - Dizziness [Unknown]
  - Product substitution issue [Unknown]
  - Fatigue [Unknown]
  - Headache [Unknown]
  - Panic attack [Unknown]
  - Anger [Unknown]
  - Depression [Unknown]
  - Drug ineffective [Unknown]
  - Gastric disorder [Unknown]
  - Feeling jittery [Unknown]
  - Amnesia [Unknown]
